FAERS Safety Report 13463158 (Version 2)
Quarter: 2017Q2

REPORT INFORMATION
  Report Type: Spontaneous
  Country: AU (occurrence: AU)
  Receive Date: 20170420
  Receipt Date: 20170509
  Transmission Date: 20170830
  Serious: Yes (Hospitalization)
  Sender: FDA-Public Use
  Company Number: AU-ESPERO PHARMACEUTICALS-ESP201704-000070

PATIENT
  Age: 64 Year
  Sex: Female

DRUGS (6)
  1. ULTRAVIST [Suspect]
     Active Substance: IOPROMIDE
  2. HEPARIN [Suspect]
     Active Substance: HEPARIN SODIUM
     Route: 013
  3. BETADINE [Suspect]
     Active Substance: POVIDONE-IODINE
     Route: 061
  4. NITROGLYCERIN. [Suspect]
     Active Substance: NITROGLYCERIN
     Route: 013
  5. MIDAZOLAM [Suspect]
     Active Substance: MIDAZOLAM HYDROCHLORIDE
     Route: 042
  6. LIGNOCAINE [Suspect]
     Active Substance: LIDOCAINE HYDROCHLORIDE
     Route: 058

REACTIONS (5)
  - Dizziness [Recovering/Resolving]
  - Urticaria [Recovering/Resolving]
  - Rash [Recovering/Resolving]
  - Dyspnoea [Recovering/Resolving]
  - Hypotension [Recovering/Resolving]

NARRATIVE: CASE EVENT DATE: 20161222
